FAERS Safety Report 8881198 (Version 1)
Quarter: 2012Q4

REPORT INFORMATION
  Report Type: 
  Country: BR (occurrence: BR)
  Receive Date: 20121031
  Receipt Date: 20121031
  Transmission Date: 20130627
  Serious: Yes (Other)
  Sender: FDA-Public Use
  Company Number: BR-ROCHE-1148756

PATIENT
  Sex: Male
  Weight: 59 kg

DRUGS (8)
  1. XELODA [Suspect]
     Indication: COLON CANCER
     Route: 065
     Dates: start: 201202
  2. OMEPRAZOLE [Concomitant]
     Indication: ABDOMINAL DISCOMFORT
     Route: 065
  3. TICLOPIDINE HYDROCHLORIDE [Concomitant]
     Indication: CARDIAC DISORDER
     Route: 065
  4. SUSTRATE [Concomitant]
     Indication: CARDIAC DISORDER
     Route: 065
  5. DILTIAZEM HYDROCHLORIDE [Concomitant]
     Indication: CARDIAC DISORDER
     Route: 065
  6. SIMVASTATIN [Concomitant]
     Route: 065
  7. NUTRIDRINK [Concomitant]
  8. SYSTANE [Concomitant]
     Indication: DRY EYE
     Dosage: each eye
     Route: 065

REACTIONS (13)
  - Palmar-plantar erythrodysaesthesia syndrome [Not Recovered/Not Resolved]
  - Metastases to liver [Unknown]
  - Nail disorder [Not Recovered/Not Resolved]
  - Nail disorder [Not Recovered/Not Resolved]
  - Nail disorder [Not Recovered/Not Resolved]
  - Discomfort [Unknown]
  - Dry skin [Unknown]
  - Nausea [Unknown]
  - Decreased appetite [Unknown]
  - Eating disorder [Not Recovered/Not Resolved]
  - Red blood cell count decreased [Unknown]
  - Asthenia [Unknown]
  - Blood cholesterol decreased [Unknown]
